FAERS Safety Report 8542433-8 (Version None)
Quarter: 2012Q3

REPORT INFORMATION
  Report Type: 
  Country: None (occurrence: None)
  Receive Date: 20120726
  Receipt Date: 20120725
  Transmission Date: 20120928
  Serious: Yes (Hospitalization)
  Sender: FDA-Public Use
  Company Number: NL-AMGEN-NLDCT2012042103

PATIENT
  Age: 60 Year
  Sex: Female
  Weight: 63 kg

DRUGS (8)
  1. ENALAPRIL MALEATE [Concomitant]
     Dosage: 5 MG, UNK
     Route: 048
     Dates: start: 20120601
  2. LIPITOR [Concomitant]
     Dosage: 20 MG, UNK
     Route: 048
     Dates: start: 20120601
  3. BISOPROLOL FUMARATE [Concomitant]
     Dosage: 2.5 MG, UNK
     Route: 048
     Dates: start: 20120601
  4. TAXOTERE [Concomitant]
     Dosage: UNK
     Dates: start: 20120615
  5. DOXORUBICIN HYDROCHLORIDE [Concomitant]
     Dosage: 80 MG, UNK
  6. LASIX [Concomitant]
     Dosage: 40 MG, UNK
     Route: 042
     Dates: start: 20120601, end: 20120617
  7. DENOSUMAB [Suspect]
     Indication: BREAST CANCER
     Dosage: 120 MG, UNK
     Route: 058
     Dates: start: 20120615
  8. CYCLOPHOSPHAMIDE [Concomitant]
     Dosage: 1000 MG, UNK
     Dates: start: 20120706

REACTIONS (1)
  - HYPERSENSITIVITY [None]
